FAERS Safety Report 18043537 (Version 1)
Quarter: 2020Q3

REPORT INFORMATION
  Report Type: Spontaneous
  Country: US (occurrence: US)
  Receive Date: 20200720
  Receipt Date: 20200720
  Transmission Date: 20201103
  Serious: No
  Sender: FDA-Public Use
  Company Number: US-PFIZER INC-2020273885

PATIENT
  Age: 40 Year
  Sex: Male
  Weight: 90.72 kg

DRUGS (2)
  1. SILDENAFIL CITRATE. [Suspect]
     Active Substance: SILDENAFIL CITRATE
     Dosage: 200 MG, 1X/DAY
     Route: 048
  2. SILDENAFIL CITRATE. [Suspect]
     Active Substance: SILDENAFIL CITRATE
     Indication: ERECTILE DYSFUNCTION
     Dosage: 100 MG, 1X/DAY (20MG, 5 TABLETS AT ONE TIME BY MOUTH)
     Route: 048
     Dates: start: 202005

REACTIONS (3)
  - Intentional product use issue [Unknown]
  - Drug ineffective [Unknown]
  - Overdose [Unknown]
